FAERS Safety Report 21902213 (Version 1)
Quarter: 2023Q1

REPORT INFORMATION
  Report Type: Spontaneous
  Country: GB (occurrence: GB)
  Receive Date: 20230124
  Receipt Date: 20230124
  Transmission Date: 20230418
  Serious: Yes (Other)
  Sender: FDA-Public Use
  Company Number: None

PATIENT
  Age: 73 Year
  Sex: Male
  Weight: 70 kg

DRUGS (21)
  1. IBUPROFEN [Suspect]
     Active Substance: IBUPROFEN
     Indication: Ill-defined disorder
     Dosage: UNK
     Route: 065
     Dates: start: 20230105
  2. Adcal [Concomitant]
     Indication: Ill-defined disorder
     Dosage: UNK, BID (TAKE ONE TWICE DAILY)
     Route: 065
     Dates: start: 20220328
  3. ALFUZOSIN [Concomitant]
     Active Substance: ALFUZOSIN
     Indication: Ill-defined disorder
     Dosage: UNK, QD (TAKE ONE DAILY)
     Route: 065
     Dates: start: 20220815
  4. ATORVASTATIN [Concomitant]
     Active Substance: ATORVASTATIN
     Indication: Ill-defined disorder
     Dosage: UNK, QD (TAKE ONE DAILY TO LOWER CHOLESTEROL)
     Route: 065
     Dates: start: 20220328
  5. AZITHROMYCIN [Concomitant]
     Active Substance: AZITHROMYCIN
     Indication: Ill-defined disorder
     Dosage: UNK (TAKE ONE EACH MONDAY, WEDNESDAY AND FRIDAY)
     Route: 065
     Dates: start: 20220511
  6. CARBOCYSTEINE [Concomitant]
     Active Substance: CARBOCYSTEINE
     Indication: Ill-defined disorder
     Dosage: UNK, TID (TAKE TWO CAPSULES THREE TIMES DAILY)
     Route: 065
     Dates: start: 20220815
  7. CIPROFLOXACIN [Concomitant]
     Active Substance: CIPROFLOXACIN
     Indication: Ill-defined disorder
     Dosage: UNK, BID (TAKE ONE TWICE DAILY)
     Route: 065
     Dates: start: 20221205, end: 20221210
  8. DICLOFENAC SODIUM [Concomitant]
     Active Substance: DICLOFENAC SODIUM
     Indication: Ill-defined disorder
     Dosage: UNK, TID (APPLY TWICE DAILY)
     Route: 065
     Dates: start: 20221103, end: 20221108
  9. FLUOROURACIL [Concomitant]
     Active Substance: FLUOROURACIL
     Indication: Ill-defined disorder
     Dosage: UNK (APPLY ONCE TO TWICE DAILY FOR 3-4 WEEKS)
     Route: 065
     Dates: start: 20221103, end: 20221124
  10. BECLOMETHASONE\FORMOTEROL [Concomitant]
     Active Substance: BECLOMETHASONE\FORMOTEROL
     Indication: Ill-defined disorder
     Dosage: UNK (USE AS DIRECTED)
     Route: 065
     Dates: start: 20220713
  11. HYDROCORTISONE [Concomitant]
     Active Substance: HYDROCORTISONE
     Indication: Ill-defined disorder
     Dosage: UNK, BID
     Route: 065
     Dates: start: 20221109, end: 20221207
  12. IVABRADINE [Concomitant]
     Active Substance: IVABRADINE
     Indication: Ill-defined disorder
     Dosage: UNK, QD (TAKE TWO DAILY)
     Route: 065
     Dates: start: 20220328
  13. MONTELUKAST [Concomitant]
     Active Substance: MONTELUKAST SODIUM
     Indication: Ill-defined disorder
     Dosage: UNK (TAKE ONE AT NIGHT TO PREVENT CHEST SYMPTOMS)
     Route: 065
     Dates: start: 20220815
  14. OMEPRAZOLE [Concomitant]
     Active Substance: OMEPRAZOLE
     Indication: Ill-defined disorder
     Dosage: UNK (TAKE ONE TWICE DAILY)
     Route: 065
     Dates: start: 20220328
  15. MORPHINE SULFATE [Concomitant]
     Active Substance: MORPHINE SULFATE
     Indication: Ill-defined disorder
     Dosage: 2.5 MG EVERY HOUR AS REQUIRED NO MORE THAN 4 DOS...
     Route: 065
     Dates: start: 20220328, end: 20230104
  16. LUPRON DEPOT [Concomitant]
     Active Substance: LEUPROLIDE ACETATE
     Indication: Ill-defined disorder
     Dosage: UNK (SC OR IM INJECTION EVERY MONTH)
     Route: 065
     Dates: start: 20221130, end: 20221228
  17. RAMIPRIL [Concomitant]
     Active Substance: RAMIPRIL
     Indication: Ill-defined disorder
     Dosage: UNK, QD (TAKE ONE DAILY TO LOWER BLOOD PRESSURE AND/OR T...)
     Route: 065
     Dates: start: 20220328
  18. ALBUTEROL [Concomitant]
     Active Substance: ALBUTEROL
     Indication: Ill-defined disorder
     Dosage: UNK (INHALE ONE OR TWO DOSES WHEN REQUIRED TO RELIEV...)
     Route: 065
     Dates: start: 20220328
  19. SILDENAFIL [Concomitant]
     Active Substance: SILDENAFIL
     Indication: Ill-defined disorder
     Dosage: UNK (TAKE AS DIRECTED APPROX ONE HOUR BEFORE SEXUAL ...)
     Route: 065
     Dates: start: 20220328
  20. SPIRIVA [Concomitant]
     Active Substance: TIOTROPIUM BROMIDE MONOHYDRATE
     Indication: Ill-defined disorder
     Dosage: UNK (TWO PUFFS ONCE DAILY)
     Route: 065
     Dates: start: 20220815
  21. THEOPHYLLINE ANHYDROUS [Concomitant]
     Active Substance: THEOPHYLLINE ANHYDROUS
     Indication: Ill-defined disorder
     Dosage: UNK BID (TAKE ONE EVERY 12 HRS)
     Route: 065
     Dates: start: 20220815

REACTIONS (1)
  - Asthma [Recovered/Resolved]

NARRATIVE: CASE EVENT DATE: 20230105
